FAERS Safety Report 9451177 (Version 1)
Quarter: 2013Q3

REPORT INFORMATION
  Report Type: Spontaneous
  Country: PL (occurrence: PL)
  Receive Date: 20130809
  Receipt Date: 20130809
  Transmission Date: 20140515
  Serious: Yes (Hospitalization)
  Sender: FDA-Public Use
  Company Number: PL-ROCHE-1259863

PATIENT
  Age: 40 Year
  Sex: Female
  Weight: 67.6 kg

DRUGS (3)
  1. MABTHERA [Suspect]
     Indication: RHEUMATOID ARTHRITIS
     Route: 042
     Dates: start: 201301
  2. METEX (POLAND) [Concomitant]
     Indication: RHEUMATOID ARTHRITIS
     Route: 058
     Dates: start: 200707
  3. METYPRED (POLAND) [Concomitant]
     Indication: RHEUMATOID ARTHRITIS
     Route: 048
     Dates: start: 200601

REACTIONS (3)
  - Urinary tract infection [Recovering/Resolving]
  - White blood cell count increased [Recovering/Resolving]
  - Granulocytosis [Recovering/Resolving]
